FAERS Safety Report 7431535-5 (Version None)
Quarter: 2011Q2

REPORT INFORMATION
  Report Type: 
  Country: None (occurrence: None)
  Receive Date: 20110422
  Receipt Date: 20110413
  Transmission Date: 20111010
  Serious: Yes (Hospitalization, Other)
  Sender: FDA-Public Use
  Company Number: US-AMGEN-USASP2011019589

PATIENT
  Age: 60 Year
  Sex: Female

DRUGS (2)
  1. ENBREL [Suspect]
     Indication: PSORIASIS
  2. ENBREL [Suspect]
     Indication: PSORIATIC ARTHROPATHY
     Dosage: 50 MG, QWK
     Dates: start: 20060101, end: 20100101

REACTIONS (9)
  - ROTATOR CUFF SYNDROME [None]
  - FALL [None]
  - ARTHRITIS [None]
  - SURGERY [None]
  - PSORIATIC ARTHROPATHY [None]
  - TENDON RUPTURE [None]
  - ANKLE FRACTURE [None]
  - HYPERAESTHESIA [None]
  - PSORIASIS [None]
